FAERS Safety Report 17997621 (Version 2)
Quarter: 2020Q3

REPORT INFORMATION
  Report Type: Spontaneous
  Country: US (occurrence: US)
  Receive Date: 20200708
  Receipt Date: 20200720
  Transmission Date: 20201103
  Serious: Yes (Other)
  Sender: FDA-Public Use
  Company Number: US-THE MENTHOLATUM COMPANY-2087151

PATIENT
  Age: 57 Year
  Sex: Female
  Weight: 63.64 kg

DRUGS (1)
  1. ROHTO ICE [Suspect]
     Active Substance: HYPROMELLOSES\TETRAHYDROZOLINE HYDROCHLORIDE\ZINC SULFATE
     Indication: PRODUCT USED FOR UNKNOWN INDICATION
     Route: 047
     Dates: start: 20200708, end: 20200708

REACTIONS (2)
  - Ocular hyperaemia [Recovering/Resolving]
  - Eye irritation [Recovering/Resolving]

NARRATIVE: CASE EVENT DATE: 20200708
